FAERS Safety Report 4439549-4 (Version None)
Quarter: 2004Q3

REPORT INFORMATION
  Report Type: 
  Country: None (occurrence: None)
  Receive Date: 20040830
  Receipt Date: 20040813
  Transmission Date: 20050211
  Serious: Yes (Hospitalization)
  Sender: FDA-Public Use
  Company Number: 2003-FF-00202FF

PATIENT
  Age: 5 Day
  Sex: Male

DRUGS (8)
  1. VIRAMUNE [Suspect]
     Indication: VERTICAL INFECTION TRANSMISSION
     Dosage: MG (MG) IU
     Route: 015
     Dates: start: 20020110
  2. COMBIVIR [Suspect]
     Dosage: IU
     Route: 015
     Dates: end: 20020110
  3. BACTRIM (BACTRIM) (TA) [Concomitant]
  4. DEROXAT (NR) [Concomitant]
  5. RETROVIR [Concomitant]
  6. RETROVIR [Concomitant]
  7. RULID (ROXITHROMYCIN) (NR) [Concomitant]
  8. FLAGYL (METRONIDAZOLE) (NR) [Concomitant]

REACTIONS (7)
  - BLOOD CREATINE PHOSPHOKINASE INCREASED [None]
  - BLOOD LACTIC ACID INCREASED [None]
  - DRUG EXPOSURE DURING PREGNANCY [None]
  - HYPERTRIGLYCERIDAEMIA [None]
  - LIPASE INCREASED [None]
  - MACROCYTOSIS [None]
  - NEONATAL DISORDER [None]
